FAERS Safety Report 6611544-6 (Version None)
Quarter: 2010Q1

REPORT INFORMATION
  Report Type: 
  Country: None (occurrence: None)
  Receive Date: 20100303
  Receipt Date: 20100225
  Transmission Date: 20100710
  Serious: Yes (Death, Hospitalization, Other)
  Sender: FDA-Public Use
  Company Number: PHHY2010BR11269

PATIENT
  Age: 84 Year
  Sex: Female

DRUGS (2)
  1. EXELON [Suspect]
     Indication: DEMENTIA ALZHEIMER'S TYPE
     Dosage: 2 MG
     Route: 048
  2. BALCOR [Concomitant]

REACTIONS (2)
  - ANGINA PECTORIS [None]
  - PNEUMONIA [None]
